FAERS Safety Report 9049938 (Version 1)
Quarter: 2013Q1

REPORT INFORMATION
  Report Type: Spontaneous
  Country: US (occurrence: US)
  Receive Date: 20130205
  Receipt Date: 20130205
  Transmission Date: 20140127
  Serious: No
  Sender: FDA-Public Use
  Company Number: US-009507513-1302USA000570

PATIENT
  Sex: 0

DRUGS (2)
  1. TICE BCG LIVE [Suspect]
     Route: 043
  2. PYRIDIUM [Concomitant]

REACTIONS (1)
  - Burning sensation [Unknown]
